FAERS Safety Report 7219910-5 (Version None)
Quarter: 2011Q1

REPORT INFORMATION
  Report Type: 
  Country: None (occurrence: None)
  Receive Date: 20110111
  Receipt Date: 20110106
  Transmission Date: 20110831
  Serious: Yes (Life-Threatening)
  Sender: FDA-Public Use
  Company Number: PHHO2011FR00693

PATIENT
  Sex: Male
  Weight: 29 kg

DRUGS (5)
  1. METHOTREXATE [Suspect]
     Indication: METASTASES TO BONE
     Dosage: 12.3G
     Route: 042
     Dates: start: 20101213
  2. VITAMIN D [Concomitant]
  3. CALCIUM [Concomitant]
  4. ONDANSETRON [Concomitant]
  5. ZOLEDRONATE [Suspect]
     Dosage: 1.5 MG, UNK
     Route: 042
     Dates: start: 20101216

REACTIONS (4)
  - HALLUCINATION, VISUAL [None]
  - CLONUS [None]
  - SYNCOPE [None]
  - CONVULSION [None]
